FAERS Safety Report 25103101 (Version 3)
Quarter: 2025Q4

REPORT INFORMATION
  Report Type: Spontaneous
  Country: US (occurrence: US)
  Receive Date: 20250321
  Receipt Date: 20251218
  Transmission Date: 20260118
  Serious: Yes (Other)
  Sender: COOPERSURGICAL
  Company Number: US-COOPERSURGICAL, INC.-2025CPS001851

PATIENT
  Sex: Female
  Weight: 70.295 kg

DRUGS (1)
  1. PARAGARD T 380A [Suspect]
     Active Substance: COPPER
     Indication: Contraception
     Dosage: UNK
     Route: 015
     Dates: start: 20091201

REACTIONS (30)
  - Stillbirth [Recovered/Resolved]
  - Surgery [Recovered/Resolved]
  - Haemorrhagic ovarian cyst [Unknown]
  - Reproductive complication associated with device [Unknown]
  - Abortion induced [Recovered/Resolved]
  - Device breakage [Recovered/Resolved]
  - Foreign body in reproductive tract [Recovered/Resolved]
  - Complication of device removal [Recovered/Resolved]
  - Embedded device [Recovered/Resolved]
  - Pregnancy with contraceptive device [Recovered/Resolved]
  - Drug ineffective [Unknown]
  - Device material issue [Recovered/Resolved]
  - Emotional distress [Unknown]
  - Sexual dysfunction [Unknown]
  - Device issue [Recovered/Resolved]
  - Procedural pain [Recovered/Resolved]
  - Complication associated with device [Recovered/Resolved]
  - Device dislocation [Recovered/Resolved]
  - Off label use [Unknown]
  - Intentional device use issue [Unknown]
  - Abnormal uterine bleeding [Recovered/Resolved]
  - Abdominal pain [Unknown]
  - Abdominal pain lower [Unknown]
  - Menstrual disorder [Unknown]
  - Dysmenorrhoea [Recovered/Resolved]
  - Hypomenorrhoea [Unknown]
  - Vaginal haemorrhage [Unknown]
  - Nausea [Unknown]
  - Pelvic pain [Recovered/Resolved]
  - Vaginal discharge [Unknown]

NARRATIVE: CASE EVENT DATE: 20100101
